FAERS Safety Report 11628866 (Version 2)
Quarter: 2015Q4

REPORT INFORMATION
  Report Type: Spontaneous
  Country: CN (occurrence: CN)
  Receive Date: 20151014
  Receipt Date: 20151030
  Transmission Date: 20160304
  Serious: Yes (Hospitalization, Other)
  Sender: FDA-Public Use
  Company Number: CN-GLAXOSMITHKLINE-CN2015GSK145558

PATIENT
  Sex: Female

DRUGS (1)
  1. SERETIDE [Suspect]
     Active Substance: FLUTICASONE FUROATE\SALMETEROL XINAFOATE
     Indication: DYSPNOEA
     Dosage: 4 PUFF(S), QD
     Route: 055

REACTIONS (11)
  - Drug ineffective [Unknown]
  - Mobility decreased [Unknown]
  - Inappropriate schedule of drug administration [Unknown]
  - Osteoporosis [Unknown]
  - Nasopharyngitis [Unknown]
  - Overdose [Unknown]
  - Cough [Unknown]
  - Hip arthroplasty [Unknown]
  - Fracture [Unknown]
  - Vision blurred [Unknown]
  - Off label use [Unknown]
